FAERS Safety Report 25376507 (Version 1)
Quarter: 2025Q2

REPORT INFORMATION
  Report Type: Spontaneous
  Country: CN (occurrence: CN)
  Receive Date: 20250530
  Receipt Date: 20250530
  Transmission Date: 20250716
  Serious: Yes (Other)
  Sender: BAXTER
  Company Number: None

PATIENT
  Age: 5 Year
  Sex: Female
  Weight: 21 kg

DRUGS (4)
  1. IFOSFAMIDE [Suspect]
     Active Substance: IFOSFAMIDE
     Indication: Leukaemia
     Dosage: 0.64 G, QD
     Route: 041
     Dates: start: 20250421, end: 20250423
  2. SODIUM CHLORIDE [Suspect]
     Active Substance: SODIUM CHLORIDE
     Indication: Medication dilution
     Dosage: 80 ML, BID, (0.9%)
     Route: 041
     Dates: start: 20250421, end: 20250423
  3. METHOTREXATE [Suspect]
     Active Substance: METHOTREXATE
     Indication: Leukaemia
     Dosage: 3.2 G, QD
     Route: 041
     Dates: start: 20250420, end: 20250420
  4. Kang fu xin [Concomitant]
     Indication: Therapeutic gargle
     Dosage: 10 ML, TID
     Route: 048

REACTIONS (3)
  - Mucosal inflammation [Recovering/Resolving]
  - Mouth ulceration [Recovering/Resolving]
  - Oral pain [Recovering/Resolving]

NARRATIVE: CASE EVENT DATE: 20250426
